FAERS Safety Report 21194640 (Version 11)
Quarter: 2022Q4

REPORT INFORMATION
  Report Type: Report from Study
  Country: PL (occurrence: None)
  Receive Date: 20220810
  Receipt Date: 20221123
  Transmission Date: 20230113
  Serious: Yes (Hospitalization)
  Sender: FDA-Public Use
  Company Number: PL-Eisai Medical Research-EC-2022-120133

PATIENT
  Age: 70 Year
  Sex: Male
  Weight: 78 kg

DRUGS (15)
  1. LENVATINIB [Suspect]
     Active Substance: LENVATINIB
     Indication: Hormone-refractory prostate cancer
     Dosage: STARTING DOSE AT 20 MG, QD; FLUCTUATED DOSAGE
     Route: 048
     Dates: start: 20211220, end: 20220629
  2. LENVATINIB [Suspect]
     Active Substance: LENVATINIB
     Indication: Prostate cancer metastatic
  3. PEMBROLIZUMAB [Suspect]
     Active Substance: PEMBROLIZUMAB
     Indication: Hormone-refractory prostate cancer
     Route: 042
     Dates: start: 20211220, end: 20220706
  4. PEMBROLIZUMAB [Suspect]
     Active Substance: PEMBROLIZUMAB
     Indication: Prostate cancer metastatic
  5. ELIGARD [Concomitant]
     Active Substance: LEUPROLIDE ACETATE
     Route: 042
     Dates: start: 201401
  6. OXYDUO [Concomitant]
     Dates: start: 20211221
  7. MORPHINE [Concomitant]
     Active Substance: MORPHINE
     Dates: start: 20211221
  8. DULOXETINE HYDROCHLORIDE [Concomitant]
     Active Substance: DULOXETINE HYDROCHLORIDE
     Dates: start: 20220104
  9. LACIDIPINE [Concomitant]
     Active Substance: LACIDIPINE
     Dates: start: 20220104
  10. MEGESTROL ACETATE [Concomitant]
     Active Substance: MEGESTROL ACETATE
     Dates: start: 20220110, end: 202208
  11. TAMSULOSIN HYDROCHLORIDE [Concomitant]
     Active Substance: TAMSULOSIN HYDROCHLORIDE
     Dates: start: 20220124
  12. PROPRANOLOL [Concomitant]
     Active Substance: PROPRANOLOL HYDROCHLORIDE
     Dates: start: 20220131
  13. EUTHYROX [Concomitant]
     Active Substance: LEVOTHYROXINE SODIUM
     Dates: start: 20220322
  14. LOPERAMIDE [Concomitant]
     Active Substance: LOPERAMIDE
     Dates: start: 20220425
  15. GLIMBAX [Concomitant]
     Dates: start: 20220425

REACTIONS (2)
  - Cholelithiasis [Recovered/Resolved]
  - Bone pain [Recovered/Resolved]

NARRATIVE: CASE EVENT DATE: 20220723
